FAERS Safety Report 6295461-X (Version None)
Quarter: 2009Q3

REPORT INFORMATION
  Report Type: 
  Country: None (occurrence: None)
  Receive Date: 20090730
  Receipt Date: 20090714
  Transmission Date: 20100115
  Serious: Yes (Death)
  Sender: FDA-Public Use
  Company Number: A03200903178

PATIENT
  Age: 57 Year
  Sex: Male

DRUGS (24)
  1. FLUDARABINE PHOSPHATE [Suspect]
     Indication: WALDENSTROM'S MACROGLOBULINAEMIA
     Dosage: ORAL
     Route: 048
     Dates: start: 20030603, end: 20031101
  2. FLUDARABINE PHOSPHATE [Suspect]
     Indication: WALDENSTROM'S MACROGLOBULINAEMIA
     Dosage: ORAL
     Route: 048
  3. (DEXAMETHASONE) - UNKNOWN - UNIT DOSE : UNKNOWN [Suspect]
     Indication: WALDENSTROM'S MACROGLOBULINAEMIA
     Dosage: 2 MG QOD
     Dates: start: 20040201
  4. (CHLORAMBUCIL) - UNKNOWN - UNIT DOSE : UNKNOWN [Suspect]
     Indication: WALDENSTROM'S MACROGLOBULINAEMIA
     Dosage: 10 MG QD
     Dates: start: 20030401
  5. CYCLOPHOSPHAMIDE [Suspect]
     Indication: WALDENSTROM'S MACROGLOBULINAEMIA
     Dosage: ORAL
     Route: 048
     Dates: start: 20031101
  6. (THALIDOMIDE) - UNKNOWN - UNIT DOSE : UNKNOWN [Suspect]
     Indication: WALDENSTROM'S MACROGLOBULINAEMIA
     Dosage: ORAL
     Route: 048
     Dates: start: 20040201
  7. (RITUXIMAB) - UNKNOWN - UNIT DOSE : UNKNOWN [Suspect]
     Indication: WALDENSTROM'S MACROGLOBULINAEMIA
     Dosage: 375 MG/M2 1/WEEK
  8. COTRIM [Concomitant]
  9. PLASMA [Concomitant]
  10. DEFEROXAMINE (DEFEROXAMINE MESILATE) [Concomitant]
  11. DIPYRIDAMOLE [Concomitant]
  12. RED CELL (BLOOD CELLS, PACKED HUMAN) [Concomitant]
  13. IMMUNE GLOBULIN INTRAVENOUS (HUMAN) [Concomitant]
  14. MEROPENEM (MEROPENEM) [Concomitant]
  15. GENTAMICIN [Concomitant]
  16. ERTAPENEM (ERTAPENEM) [Concomitant]
  17. METRONIDAZOLE (METRONIDAZOLE) [Concomitant]
  18. AMPHOTERICIN B [Concomitant]
  19. PYRIMETHAMINE TAB [Concomitant]
  20. SULPHADIAZINE (SULPHADIAZINE) [Concomitant]
  21. LEUCOVORIN CALCIUM [Concomitant]
  22. CIPROFLOXACIN [Concomitant]
  23. NEUPOGEN [Concomitant]
  24. ACYCLOVIR [Concomitant]

REACTIONS (12)
  - BONE MARROW FAILURE [None]
  - CEREBRAL TOXOPLASMOSIS [None]
  - CITROBACTER SEPSIS [None]
  - ECTHYMA [None]
  - GANGRENE [None]
  - HYPOGAMMAGLOBULINAEMIA [None]
  - MOLLUSCUM CONTAGIOSUM [None]
  - PANCYTOPENIA [None]
  - PSEUDOMONAL SEPSIS [None]
  - RASH PUSTULAR [None]
  - SERUM FERRITIN INCREASED [None]
  - STREPTOCOCCAL INFECTION [None]
